FAERS Safety Report 5466707-2 (Version None)
Quarter: 2007Q3

REPORT INFORMATION
  Report Type: 
  Country: None (occurrence: None)
  Receive Date: 20070924
  Receipt Date: 20070924
  Transmission Date: 20080115
  Serious: Yes (Hospitalization)
  Sender: FDA-Public Use
  Company Number: None

PATIENT
  Sex: Female
  Weight: 70.3 kg

DRUGS (3)
  1. CYTARABINE [Suspect]
     Dosage: 2806 MG
  2. DAUNORUBICIN HCL [Suspect]
     Dosage: 258 MG
  3. ETOPOSIDE [Suspect]
     Dosage: 855 MG

REACTIONS (1)
  - RESPIRATORY DISTRESS [None]
